FAERS Safety Report 10031062 (Version 2)
Quarter: 2014Q2

REPORT INFORMATION
  Report Type: Spontaneous
  Country: US (occurrence: US)
  Receive Date: 20140324
  Receipt Date: 20140428
  Transmission Date: 20141212
  Serious: Yes (Hospitalization)
  Sender: FDA-Public Use
  Company Number: US-BIOGENIDEC-2014BI024339

PATIENT
  Age: 69 Year
  Sex: Female

DRUGS (1)
  1. AVONEX [Suspect]
     Indication: MULTIPLE SCLEROSIS
     Route: 030
     Dates: start: 20030101

REACTIONS (3)
  - Pemphigoid [Unknown]
  - Cholecystectomy [Recovered/Resolved]
  - Autoimmune disorder [Recovered/Resolved]
